FAERS Safety Report 11849154 (Version 1)
Quarter: 2015Q4

REPORT INFORMATION
  Report Type: Spontaneous
  Country: GB (occurrence: GB)
  Receive Date: 20151218
  Receipt Date: 20151218
  Transmission Date: 20160305
  Serious: Yes (Hospitalization)
  Sender: FDA-Public Use
  Company Number: GB-FRESENIUS KABI-FK201506642

PATIENT
  Age: 89 Year
  Sex: Female
  Weight: 57.15 kg

DRUGS (12)
  1. ADCAL D3 [Concomitant]
     Active Substance: CALCIUM CARBONATE\CHOLECALCIFEROL
  2. ATENOLOL. [Concomitant]
     Active Substance: ATENOLOL
  3. ZOLEDRONIC ACID (MANUFACTURER UNKNOWN) [Suspect]
     Active Substance: ZOLEDRONIC ACID
     Indication: RHEUMATOID ARTHRITIS
     Route: 042
     Dates: start: 20151105
  4. CLOPIDOGREL [Concomitant]
     Active Substance: CLOPIDOGREL BISULFATE
  5. MEBEVERINE [Concomitant]
     Active Substance: MEBEVERINE
  6. SIMVASTATIN. [Concomitant]
     Active Substance: SIMVASTATIN
  7. CALCIUM CARBONATE. [Concomitant]
     Active Substance: CALCIUM CARBONATE
  8. FOLIC ACID. [Concomitant]
     Active Substance: FOLIC ACID
  9. INDAPAMIDE. [Concomitant]
     Active Substance: INDAPAMIDE
  10. LOSARTAN. [Concomitant]
     Active Substance: LOSARTAN
  11. METHOTREXATE [Concomitant]
     Active Substance: METHOTREXATE
  12. PARACETAMOL [Concomitant]
     Active Substance: ACETAMINOPHEN

REACTIONS (3)
  - Acute kidney injury [Recovering/Resolving]
  - Vomiting [Recovering/Resolving]
  - Lethargy [Recovering/Resolving]

NARRATIVE: CASE EVENT DATE: 20151116
